FAERS Safety Report 13610373 (Version 1)
Quarter: 2017Q2

REPORT INFORMATION
  Report Type: Spontaneous
  Country: US (occurrence: US)
  Receive Date: 20170602
  Receipt Date: 20170602
  Transmission Date: 20170830
  Serious: Yes (Hospitalization)
  Sender: FDA-Public Use
  Company Number: None

PATIENT
  Age: 49 Year
  Sex: Female
  Weight: 106.2 kg

DRUGS (5)
  1. LISINOPRYL [Concomitant]
  2. POTASSIUM CIT [Concomitant]
  3. JANUMET [Concomitant]
     Active Substance: METFORMIN HYDROCHLORIDE\SITAGLIPTIN PHOSPHATE
  4. PRAVASTATIN. [Concomitant]
     Active Substance: PRAVASTATIN
  5. INVOKANA [Suspect]
     Active Substance: CANAGLIFLOZIN
     Indication: BLOOD GLUCOSE INCREASED
     Route: 048
     Dates: start: 20150115, end: 20150215

REACTIONS (7)
  - Stag horn calculus [None]
  - Back pain [None]
  - Abdominal pain [None]
  - Pain [None]
  - Malaise [None]
  - Cystitis [None]
  - Nephrolithiasis [None]

NARRATIVE: CASE EVENT DATE: 20150602
